FAERS Safety Report 12272827 (Version 4)
Quarter: 2016Q3

REPORT INFORMATION
  Report Type: Report from Study
  Country: TW (occurrence: TW)
  Receive Date: 20160415
  Receipt Date: 20160802
  Transmission Date: 20161109
  Serious: Yes (Hospitalization)
  Sender: FDA-Public Use
  Company Number: TW-B.I. PHARMACEUTICALS,INC./RIDGEFIELD-2013-CS-00419CS

PATIENT
  Age: 53 Year
  Sex: Female
  Weight: 45 kg

DRUGS (1)
  1. BIBW 2992 [Suspect]
     Active Substance: AFATINIB
     Indication: BREAST CANCER
     Dosage: 30 MG
     Route: 048
     Dates: start: 20130610, end: 20130618

REACTIONS (1)
  - Herpes zoster [Recovered/Resolved]

NARRATIVE: CASE EVENT DATE: 20130617
